FAERS Safety Report 19802243 (Version 1)
Quarter: 2021Q3

REPORT INFORMATION
  Report Type: Spontaneous
  Country: US (occurrence: US)
  Receive Date: 20210907
  Receipt Date: 20210907
  Transmission Date: 20211014
  Serious: No
  Sender: FDA-Public Use
  Company Number: None

PATIENT
  Sex: Female
  Weight: 79.65 kg

DRUGS (17)
  1. BRUKINSA [Suspect]
     Active Substance: ZANUBRUTINIB
     Indication: CHRONIC LYMPHOCYTIC LEUKAEMIA
     Route: 048
  2. NIZATIDINE. [Concomitant]
     Active Substance: NIZATIDINE
  3. ELIQUIS [Concomitant]
     Active Substance: APIXABAN
  4. VAGIFEM [Concomitant]
     Active Substance: ESTRADIOL
  5. METOPROLOL. [Concomitant]
     Active Substance: METOPROLOL
  6. ESOMEPRAZOLE. [Concomitant]
     Active Substance: ESOMEPRAZOLE MAGNESIUM
  7. NASONEX [Concomitant]
     Active Substance: MOMETASONE FUROATE
  8. SIMVASTATIN. [Concomitant]
     Active Substance: SIMVASTATIN
  9. SERTRALINE [Concomitant]
     Active Substance: SERTRALINE HYDROCHLORIDE
  10. ATORVASTATIN [Concomitant]
     Active Substance: ATORVASTATIN
  11. ALLOPURINOL. [Concomitant]
     Active Substance: ALLOPURINOL
  12. ACETAMINOPHEN. [Concomitant]
     Active Substance: ACETAMINOPHEN
  13. SYSTANE (HYPROMELLOSE 2910 (4000 MPA.S)) [Concomitant]
     Active Substance: HYPROMELLOSE 2910 (4000 MPA.S)
  14. PROLIA [Concomitant]
     Active Substance: DENOSUMAB
  15. CEFDINIR. [Concomitant]
     Active Substance: CEFDINIR
  16. VITAMIN D [Concomitant]
     Active Substance: VITAMIN D NOS
  17. SYNTHROID [Concomitant]
     Active Substance: LEVOTHYROXINE SODIUM

REACTIONS (2)
  - Fatigue [None]
  - Hypersomnia [None]
